FAERS Safety Report 20084130 (Version 1)
Quarter: 2021Q4

REPORT INFORMATION
  Report Type: Spontaneous
  Country: CA (occurrence: CA)
  Receive Date: 20211118
  Receipt Date: 20211118
  Transmission Date: 20220303
  Serious: Yes (Other)
  Sender: FDA-Public Use
  Company Number: CA-BAUSCH-BL-2021-037732

PATIENT
  Sex: Female

DRUGS (5)
  1. NABILONE [Suspect]
     Active Substance: NABILONE
     Indication: Product used for unknown indication
     Route: 065
  2. DAPSONE [Suspect]
     Active Substance: DAPSONE
     Indication: Product used for unknown indication
     Route: 065
  3. HUMAN IMMUNOGLOBULIN G [Suspect]
     Active Substance: HUMAN IMMUNOGLOBULIN G
     Indication: Product used for unknown indication
     Route: 065
  4. PENICILLIN V [Suspect]
     Active Substance: PENICILLIN V
     Indication: Product used for unknown indication
     Route: 065
  5. RITUXIMAB [Suspect]
     Active Substance: RITUXIMAB
     Indication: Myasthenia gravis
     Route: 042

REACTIONS (2)
  - Meningitis aseptic [Unknown]
  - Drug hypersensitivity [Unknown]
